FAERS Safety Report 7273190-3 (Version None)
Quarter: 2010Q4

REPORT INFORMATION
  Report Type: 
  Country: None (occurrence: None)
  Receive Date: 20101201
  Receipt Date: 20100510
  Transmission Date: 20110411
  Serious: Yes (Other)
  Sender: FDA-Public Use
  Company Number: 308380

PATIENT
  Age: 74 Year
  Sex: Female
  Weight: 74.4 kg

DRUGS (3)
  1. NOVOLOG [Suspect]
     Indication: TYPE 2 DIABETES MELLITUS
     Dosage: SLIDING SCALE, SUBCUTANEOUS
     Route: 058
     Dates: start: 20100507, end: 20100509
  2. GLUCOVANCE /01182201/ (GLIBENCLAMIDE METFORMIN HYDROCHLORIDE) [Concomitant]
  3. PREDNISONE TAB [Concomitant]

REACTIONS (2)
  - BLOOD GLUCOSE INCREASED [None]
  - INCORRECT PRODUCT STORAGE [None]
